FAERS Safety Report 9915538 (Version 1)
Quarter: 2014Q1

REPORT INFORMATION
  Report Type: Spontaneous
  Country: GR (occurrence: GR)
  Receive Date: 20140221
  Receipt Date: 20140221
  Transmission Date: 20141002
  Serious: Yes (Hospitalization)
  Sender: FDA-Public Use
  Company Number: GR-ORION CORPORATION ORION PHARMA-ENTC2014-0064

PATIENT
  Age: 84 Year
  Sex: Female

DRUGS (4)
  1. STALEVO [Suspect]
     Route: 065
  2. STALEVO [Suspect]
     Dosage: STRENGTH: 50/12.5/200 MG
     Route: 065
  3. MADOPAR [Suspect]
     Route: 065
  4. SINEMET [Suspect]
     Route: 065

REACTIONS (3)
  - Hypophagia [Unknown]
  - Fluid intake reduced [Unknown]
  - Abdominal pain upper [Not Recovered/Not Resolved]
